FAERS Safety Report 16916437 (Version 2)
Quarter: 2019Q4

REPORT INFORMATION
  Report Type: Spontaneous
  Country: GB (occurrence: GB)
  Receive Date: 20191014
  Receipt Date: 20191028
  Transmission Date: 20200122
  Serious: Yes (Other)
  Sender: FDA-Public Use
  Company Number: GB-BIOGEN-2019BI00795086

PATIENT
  Age: 1 Year

DRUGS (1)
  1. TYSABRI [Suspect]
     Active Substance: NATALIZUMAB
     Indication: MULTIPLE SCLEROSIS
     Route: 064
     Dates: end: 20180125

REACTIONS (2)
  - Foetal exposure during pregnancy [Recovered/Resolved]
  - Autoimmune neutropenia [Unknown]

NARRATIVE: CASE EVENT DATE: 20190901
